FAERS Safety Report 4929717-7 (Version None)
Quarter: 2006Q1

REPORT INFORMATION
  Report Type: 
  Country: None (occurrence: None)
  Receive Date: 20060301
  Receipt Date: 20050726
  Transmission Date: 20060701
  Serious: Yes (Death, Hospitalization, Other)
  Sender: FDA-Public Use
  Company Number: CA-MERCK-0507CAN00204

PATIENT
  Age: 61 Year
  Sex: Female

DRUGS (6)
  1. VIOXX [Suspect]
     Indication: ARTHRITIS
     Route: 048
     Dates: start: 20030101
  2. CELECOXIB [Suspect]
     Indication: ARTHRITIS
     Route: 048
     Dates: start: 19990101
  3. CELECOXIB [Suspect]
     Route: 048
  4. ASPIRIN [Concomitant]
     Route: 065
     Dates: start: 20021001
  5. LANSOPRAZOLE [Concomitant]
     Route: 065
     Dates: start: 20030401
  6. DICLOFENAC SODIUM AND MISOPROSTOL [Concomitant]
     Route: 065

REACTIONS (2)
  - CHEST PAIN [None]
  - MYOCARDIAL INFARCTION [None]
